FAERS Safety Report 14874770 (Version 2)
Quarter: 2018Q3

REPORT INFORMATION
  Report Type: Spontaneous
  Country: CR (occurrence: CR)
  Receive Date: 20180510
  Receipt Date: 20180702
  Transmission Date: 20181010
  Serious: Yes (Hospitalization, Other)
  Sender: FDA-Public Use
  Company Number: CR-PFIZER INC-2018187944

PATIENT
  Sex: Male

DRUGS (2)
  1. TAFIL [Suspect]
     Active Substance: ALPRAZOLAM
     Dosage: 1 MG, SINGLE
  2. TAFIL [Suspect]
     Active Substance: ALPRAZOLAM
     Indication: INSOMNIA
     Dosage: 0.25 MG, AS NEEDED AT BEDTIME

REACTIONS (15)
  - Tongue disorder [Unknown]
  - Dehydration [Unknown]
  - Tremor [Unknown]
  - Panic attack [Unknown]
  - Cerebral infarction [Unknown]
  - Disorientation [Unknown]
  - Disorganised speech [Unknown]
  - Amnesia [Unknown]
  - Dizziness [Unknown]
  - Delirium [Unknown]
  - Blood creatinine increased [Unknown]
  - Ischaemic stroke [Unknown]
  - Confusional state [Unknown]
  - Blood pressure abnormal [Unknown]
  - Feeling abnormal [Unknown]

NARRATIVE: CASE EVENT DATE: 20180430
